FAERS Safety Report 5071375-8 (Version None)
Quarter: 2006Q3

REPORT INFORMATION
  Report Type: 
  Country: None (occurrence: None)
  Receive Date: 20060803
  Receipt Date: 20060803
  Transmission Date: 20061208
  Serious: No
  Sender: FDA-Public Use
  Company Number: None

PATIENT
  Age: 60 Year
  Sex: Female

DRUGS (7)
  1. NITROFURANTOIN [Suspect]
     Dates: start: 20040201, end: 20060204
  2. KETEK [Suspect]
     Dates: start: 20060121, end: 20060126
  3. BIAXIN [Concomitant]
  4. HORMONE REPLACEMENT THERAPY [Concomitant]
  5. ALBUTEROL [Concomitant]
  6. ALLEGRA [Concomitant]
  7. ACETAMINOPHEN [Concomitant]

REACTIONS (18)
  - ABDOMINAL DISCOMFORT [None]
  - ALANINE AMINOTRANSFERASE INCREASED [None]
  - ASCITES [None]
  - ASPARTATE AMINOTRANSFERASE INCREASED [None]
  - BILIARY CIRRHOSIS [None]
  - BILIRUBIN CONJUGATED INCREASED [None]
  - BLOOD ALKALINE PHOSPHATASE INCREASED [None]
  - BLOOD BILIRUBIN INCREASED [None]
  - CARCINOEMBRYONIC ANTIGEN INCREASED [None]
  - COMPUTERISED TOMOGRAM ABNORMAL [None]
  - DRUG EFFECT DECREASED [None]
  - HEPATIC TRAUMA [None]
  - INJURY [None]
  - JAUNDICE [None]
  - LIVER DISORDER [None]
  - NUCLEAR MAGNETIC RESONANCE IMAGING ABNORMAL [None]
  - OCULAR ICTERUS [None]
  - PNEUMONIA [None]
